FAERS Safety Report 9163020 (Version 3)
Quarter: 2013Q2

REPORT INFORMATION
  Report Type: Spontaneous
  Country: JP (occurrence: JP)
  Receive Date: 20130314
  Receipt Date: 20130501
  Transmission Date: 20140414
  Serious: Yes (Hospitalization, Other)
  Sender: FDA-Public Use
  Company Number: JP-BAXTER-2013BAX009442

PATIENT
  Age: 59 Year
  Sex: Male

DRUGS (36)
  1. ENDOXAN 1G [Suspect]
     Indication: MYELODYSPLASTIC SYNDROME
     Route: 041
     Dates: start: 20120602, end: 20120603
  2. ENDOXAN 1G [Suspect]
     Indication: BONE MARROW CONDITIONING REGIMEN
  3. VANCOMYCIN [Concomitant]
     Indication: PSEUDOMEMBRANOUS COLITIS
     Route: 048
     Dates: start: 20120604, end: 20120611
  4. VANCOMYCIN [Concomitant]
     Indication: SEPSIS
     Route: 041
     Dates: start: 20120613, end: 20120618
  5. MUCODYNE [Concomitant]
     Indication: CHRONIC SINUSITIS
     Route: 048
     Dates: start: 20120521
  6. ALOSITOL [Concomitant]
     Indication: HYPERURICAEMIA
     Route: 048
     Dates: start: 20120521, end: 20120603
  7. MESNA [Concomitant]
     Indication: CYSTITIS HAEMORRHAGIC
     Route: 041
     Dates: start: 20120602, end: 20120603
  8. CEFEPIME DIHYDROCHLORIDE HYDRATE [Concomitant]
     Indication: MUCOUS MEMBRANE DISORDER
     Route: 041
     Dates: start: 20120605, end: 20120611
  9. CEFEPIME DIHYDROCHLORIDE HYDRATE [Concomitant]
     Indication: PYREXIA
  10. CEFEPIME DIHYDROCHLORIDE HYDRATE [Concomitant]
     Indication: SEPSIS
  11. MEROPENEM [Concomitant]
     Indication: SEPSIS
     Route: 041
     Dates: start: 20120612, end: 20120703
  12. URSO [Concomitant]
     Indication: LIVER DISORDER
     Route: 048
     Dates: start: 20120526
  13. DIFLUCAN [Concomitant]
     Indication: GRAFT INFECTION
     Route: 048
     Dates: start: 20120528, end: 20120613
  14. CRAVIT [Concomitant]
     Indication: GRAFT INFECTION
     Route: 048
     Dates: start: 20120528, end: 20120604
  15. ACICLOVIR [Concomitant]
     Indication: ANTIVIRAL PROPHYLAXIS
     Route: 048
     Dates: start: 20120529
  16. PHELLOBERIN [Concomitant]
     Indication: MUCOUS MEMBRANE DISORDER
     Dosage: 6 DOSAGE FORM
     Route: 048
     Dates: start: 20120604
  17. PARIET [Concomitant]
     Indication: PROPHYLAXIS AGAINST GASTROINTESTINAL ULCER
     Route: 048
     Dates: start: 20120612
  18. KYTRIL [Concomitant]
     Indication: VOMITING
     Route: 041
     Dates: start: 20120530, end: 20120603
  19. KYTRIL [Concomitant]
     Indication: VOMITING
  20. MEYLON [Concomitant]
     Indication: HYPERURICOSURIA
     Route: 041
     Dates: start: 20120602, end: 20120603
  21. PROGRAF [Concomitant]
     Indication: PROPHYLAXIS AGAINST GRAFT VERSUS HOST DISEASE
     Route: 041
     Dates: start: 20120604
  22. METHOTREXATE [Concomitant]
     Indication: PROPHYLAXIS AGAINST GRAFT VERSUS HOST DISEASE
     Route: 041
     Dates: start: 20120606, end: 20120611
  23. OMEPRAL [Concomitant]
     Indication: PROPHYLAXIS AGAINST GASTROINTESTINAL ULCER
     Route: 041
     Dates: start: 20120605, end: 20120611
  24. NEUTROGIN [Concomitant]
     Indication: NEUTROPENIA
     Route: 041
     Dates: start: 20120612, end: 20120704
  25. MORPHINE HYDROCHLORIDE [Concomitant]
     Indication: MUCOUS MEMBRANE DISORDER
     Route: 041
     Dates: start: 20120611, end: 20120619
  26. ELNEOPA NO.1 [Concomitant]
     Indication: MALNUTRITION
     Route: 041
     Dates: start: 20120607, end: 20120628
  27. INTRALIPID20% [Concomitant]
     Indication: MALNUTRITION
     Route: 041
     Dates: start: 20120611, end: 20120711
  28. MAGNESIUM SULFATE [Concomitant]
     Indication: MALNUTRITION
     Route: 041
     Dates: start: 20120611, end: 20120711
  29. KCL CORRECTIVE [Concomitant]
     Indication: MALNUTRITION
     Route: 041
     Dates: start: 20120615, end: 20120627
  30. VENOGLOBULIN-IH [Concomitant]
     Indication: SEPSIS
     Route: 041
     Dates: start: 20120612, end: 20120628
  31. NOVOLIN R [Concomitant]
     Indication: DIABETES MELLITUS
     Route: 058
     Dates: start: 20120619, end: 20120708
  32. VFEND [Concomitant]
     Indication: SEPSIS
     Route: 041
     Dates: start: 20120613, end: 20120703
  33. TEICOPLANIN [Concomitant]
     Indication: SEPSIS
     Route: 041
     Dates: start: 20120618, end: 20120624
  34. PRIDOL [Concomitant]
     Indication: ENGRAFTMENT SYNDROME
     Route: 041
     Dates: start: 20120619, end: 20120625
  35. PRIDOL [Concomitant]
     Route: 041
     Dates: start: 20120626, end: 20120627
  36. PRIDOL [Concomitant]
     Route: 041
     Dates: start: 20120628, end: 20120629

REACTIONS (2)
  - Atrial fibrillation [Recovered/Resolved]
  - Atrial flutter [Recovered/Resolved]
